FAERS Safety Report 4406317-9 (Version None)
Quarter: 2004Q3

REPORT INFORMATION
  Report Type: 
  Country: None (occurrence: None)
  Receive Date: 20040723
  Receipt Date: 20030618
  Transmission Date: 20050211
  Serious: No
  Sender: FDA-Public Use
  Company Number: US-GLAXOSMITHKLINE-A0412970A

PATIENT
  Age: 66 Year
  Sex: Male
  Weight: 94.1 kg

DRUGS (11)
  1. AVANDIA [Suspect]
     Dosage: 8MG PER DAY
     Route: 048
     Dates: start: 19980401, end: 20030101
  2. PRAVACHOL [Concomitant]
     Dosage: 40MG PER DAY
  3. HYDRALAZINE [Concomitant]
     Dosage: 50MG PER DAY
  4. TRICOR [Concomitant]
     Dosage: 54MG PER DAY
  5. FUROSEMIDE [Concomitant]
     Dosage: 40MG PER DAY
  6. AMARYL [Concomitant]
     Dosage: 4MG PER DAY
  7. ASPIRIN [Concomitant]
     Dosage: 81MG PER DAY
  8. ATENOLOL [Concomitant]
     Dosage: 50MG PER DAY
  9. MULTIVITAMIN [Concomitant]
     Dosage: 1TAB PER DAY
  10. COZAAR [Concomitant]
     Dosage: 100MG PER DAY
  11. INSULIN [Concomitant]
     Dosage: 15UNIT PER DAY

REACTIONS (1)
  - WEIGHT INCREASED [None]
